FAERS Safety Report 23249609 (Version 1)
Quarter: 2023Q4

REPORT INFORMATION
  Report Type: Spontaneous
  Country: DE (occurrence: DE)
  Receive Date: 20231201
  Receipt Date: 20231201
  Transmission Date: 20240110
  Serious: Yes (Other)
  Sender: FDA-Public Use
  Company Number: DE-002147023-NVSC2023DE245169

PATIENT
  Age: 44 Year
  Sex: Female

DRUGS (6)
  1. HYDROXYUREA [Suspect]
     Active Substance: HYDROXYUREA
     Indication: Polycythaemia vera
     Dosage: 1000 MG, QD (DAILY)
     Dates: end: 2018
  2. RUXOLITINIB [Suspect]
     Active Substance: RUXOLITINIB
     Indication: Polycythaemia vera
     Dosage: 10 MG, BID (2X DAILY)
     Dates: start: 2018
  3. ANAGRELIDE [Concomitant]
     Active Substance: ANAGRELIDE
     Indication: Essential thrombocythaemia
     Dosage: UNK
     Dates: end: 2018
  4. ANAGRELIDE [Concomitant]
     Active Substance: ANAGRELIDE
     Indication: Essential thrombocythaemia
     Dosage: 0.5 MG, BID (2X DAILY)
  5. ASPIRIN [Concomitant]
     Active Substance: ASPIRIN
     Indication: Essential thrombocythaemia
     Dosage: 50 MG, QD (DAILY)
  6. ASPIRIN [Concomitant]
     Active Substance: ASPIRIN
     Indication: Essential thrombocythaemia
     Dosage: 100 MG, QD (DAILY)
     Dates: start: 201507

REACTIONS (5)
  - Blood erythropoietin decreased [Recovering/Resolving]
  - Platelet count increased [Recovering/Resolving]
  - Haematocrit increased [Recovering/Resolving]
  - Drug intolerance [Unknown]
  - Polycythaemia vera [Recovering/Resolving]

NARRATIVE: CASE EVENT DATE: 20180101
